FAERS Safety Report 5133667-3 (Version None)
Quarter: 2006Q4

REPORT INFORMATION
  Report Type: 
  Country: None (occurrence: None)
  Receive Date: 20061024
  Receipt Date: 20060927
  Transmission Date: 20070319
  Serious: Yes (Death)
  Sender: FDA-Public Use
  Company Number: 2006AP04523

PATIENT
  Age: 26301 Day
  Sex: Female
  Weight: 31 kg

DRUGS (7)
  1. IRESSA [Suspect]
     Indication: NON-SMALL CELL LUNG CANCER
     Route: 048
     Dates: start: 20060908, end: 20060919
  2. IRESSA [Suspect]
     Indication: LUNG ADENOCARCINOMA STAGE IV
     Route: 048
     Dates: start: 20060908, end: 20060919
  3. CODEINE PHOSPHATE 10% [Concomitant]
     Indication: COUGH
     Route: 048
     Dates: start: 20060905
  4. OMEPRAZOLE [Concomitant]
     Indication: GASTRIC ULCER
     Route: 048
     Dates: start: 20060905, end: 20060926
  5. SODIUM CHLORIDE [Concomitant]
     Indication: HYPONATRAEMIA
     Dates: start: 20060905, end: 20060926
  6. RESPLEN [Concomitant]
     Indication: COUGH
     Route: 048
     Dates: start: 20060905, end: 20060926
  7. CISPLATIN [Concomitant]

REACTIONS (3)
  - INTERSTITIAL LUNG DISEASE [None]
  - RESPIRATORY FAILURE [None]
  - THERAPY NON-RESPONDER [None]
